FAERS Safety Report 24897902 (Version 1)
Quarter: 2025Q1

REPORT INFORMATION
  Report Type: Spontaneous
  Country: CN (occurrence: CN)
  Receive Date: 20250129
  Receipt Date: 20250129
  Transmission Date: 20250409
  Serious: Yes (Hospitalization)
  Sender: NOVARTIS
  Company Number: CN-002147023-NVSC2025CN009811

PATIENT
  Age: 83 Year
  Sex: Female
  Weight: 58 kg

DRUGS (1)
  1. DIOVAN [Suspect]
     Active Substance: VALSARTAN
     Indication: Hypertension
     Dosage: 80 MG, QD
     Route: 048
     Dates: start: 20241110, end: 20241209

REACTIONS (3)
  - Haematuria [Recovering/Resolving]
  - Ureterolithiasis [Recovering/Resolving]
  - Renal hydrocele [Recovering/Resolving]

NARRATIVE: CASE EVENT DATE: 20241210
